FAERS Safety Report 4754347-X (Version None)
Quarter: 2005Q3

REPORT INFORMATION
  Report Type: 
  Country: None (occurrence: None)
  Receive Date: 20050829
  Receipt Date: 20020624
  Transmission Date: 20060218
  Serious: Yes (Other)
  Sender: FDA-Public Use
  Company Number: PHFR2002GB02030

PATIENT
  Age: 71 Year
  Sex: Female

DRUGS (4)
  1. OCTREOTIDE [Suspect]
     Indication: FISTULA
     Dosage: 1000MCG/DAY
     Route: 058
     Dates: start: 20020531, end: 20020607
  2. MAXOLON [Concomitant]
     Dosage: UNK, PRN
     Route: 065
  3. METRONIDAZOLE [Concomitant]
     Dosage: 400 MG, TID
     Route: 065
  4. IMODIUM [Concomitant]
     Dosage: UNK, PRN
     Route: 065

REACTIONS (2)
  - HYPERKALAEMIA [None]
  - HYPONATRAEMIA [None]
